FAERS Safety Report 16951368 (Version 1)
Quarter: 2019Q4

REPORT INFORMATION
  Report Type: Spontaneous
  Country: US (occurrence: US)
  Receive Date: 20191022
  Receipt Date: 20191022
  Transmission Date: 20200122
  Serious: Yes (Hospitalization)
  Sender: FDA-Public Use
  Company Number: None

PATIENT
  Age: 69 Year
  Sex: Male

DRUGS (15)
  1. FOLIC ACID TAB 1000 MG [Concomitant]
  2. HYDROXYCHLOR TAB 200 MG [Concomitant]
  3. METHOTREXATE INJ 50 MG/2ML [Concomitant]
     Active Substance: METHOTREXATE SODIUM
  4. PREDNISONE TAB 5 MG [Concomitant]
  5. FLUOXETINE CAP 20 MG [Concomitant]
  6. HUMIRA [Suspect]
     Active Substance: ADALIMUMAB
     Indication: RHEUMATOID ARTHRITIS
     Dosage: ?          OTHER FREQUENCY:EVERY WEEK;?
     Route: 058
     Dates: start: 20180206
  7. AMLODIPINE TAB 10 MG [Concomitant]
  8. BRIMONIDINE SOL 0.2% OP [Concomitant]
  9. LOSARTAN POT TAB 50 MG [Concomitant]
  10. OXYBUTYNIN TAB 5 MG ER [Concomitant]
  11. SIMVASTATIN TAB 40 MG [Concomitant]
  12. BACLOFEN TAB 10 MG [Concomitant]
  13. METFORMIN [Concomitant]
     Active Substance: METFORMIN HYDROCHLORIDE
  14. PIOGLITAZONE TAB 30 MG [Concomitant]
  15. WARFARIN TAB 7.5 MG [Concomitant]

REACTIONS (2)
  - Cerebrovascular accident [None]
  - Therapy cessation [None]
